FAERS Safety Report 15920321 (Version 1)
Quarter: 2019Q1

REPORT INFORMATION
  Report Type: Spontaneous
  Country: TR (occurrence: TR)
  Receive Date: 20190205
  Receipt Date: 20190205
  Transmission Date: 20190417
  Serious: Yes (Other)
  Sender: FDA-Public Use
  Company Number: TR-BAYER-2018-242239

PATIENT
  Age: 29 Year
  Sex: Female

DRUGS (2)
  1. YAZZ 24+4 [Suspect]
     Active Substance: DROSPIRENONE\ETHINYL ESTRADIOL
     Dosage: UNK
     Route: 048
     Dates: start: 201810
  2. YASMIN [Suspect]
     Active Substance: DROSPIRENONE\ETHINYL ESTRADIOL
     Indication: CONTRACEPTION
     Dosage: UNK
     Route: 048
     Dates: start: 2017, end: 2018

REACTIONS (8)
  - Cardiac discomfort [None]
  - Arrhythmia [Recovered/Resolved]
  - Hypomenorrhoea [Not Recovered/Not Resolved]
  - Decreased appetite [Recovered/Resolved]
  - Nausea [Recovered/Resolved]
  - Arrhythmia [None]
  - Cardiac discomfort [Recovered/Resolved]
  - Weight increased [None]

NARRATIVE: CASE EVENT DATE: 2017
